FAERS Safety Report 15888795 (Version 1)
Quarter: 2019Q1

REPORT INFORMATION
  Report Type: Spontaneous
  Country: JP (occurrence: JP)
  Receive Date: 20190130
  Receipt Date: 20190130
  Transmission Date: 20190417
  Serious: Yes (Other)
  Sender: FDA-Public Use
  Company Number: JP-BAYER-2019-017734

PATIENT
  Age: 65 Year
  Sex: Male

DRUGS (6)
  1. NEXAVAR [Suspect]
     Active Substance: SORAFENIB
     Indication: METASTASES TO PERITONEUM
     Dosage: 200MG, DAILY
     Dates: start: 201608
  2. TEGAFUR;URACIL [Concomitant]
     Dosage: UNK
     Route: 048
     Dates: start: 2016
  3. LENVATINIB [Concomitant]
     Active Substance: LENVATINIB
     Dosage: 12MG, DAILY
     Dates: start: 2018
  4. NEXAVAR [Suspect]
     Active Substance: SORAFENIB
     Indication: HEPATOCELLULAR CARCINOMA
     Dosage: 800MG, DAILY
     Dates: start: 2016, end: 2016
  5. STIVARGA [Suspect]
     Active Substance: REGORAFENIB
     Indication: HEPATOCELLULAR CARCINOMA
     Dosage: 120MG, 1?
     Dates: start: 201709
  6. STIVARGA [Suspect]
     Active Substance: REGORAFENIB
     Indication: METASTASES TO PERITONEUM
     Dosage: 160MG, DAILY
     Dates: start: 2017

REACTIONS (5)
  - Lymphocyte stimulation test positive [None]
  - Pyrexia [None]
  - Liver disorder [None]
  - Dysphonia [None]
  - Palmar-plantar erythrodysaesthesia syndrome [None]

NARRATIVE: CASE EVENT DATE: 2016
